FAERS Safety Report 5155479-7 (Version None)
Quarter: 2006Q4

REPORT INFORMATION
  Report Type: 
  Country: None (occurrence: None)
  Receive Date: 20061121
  Receipt Date: 20061115
  Transmission Date: 20070319
  Serious: Yes (Other)
  Sender: FDA-Public Use
  Company Number: CA-BOEHRINGER INGELHEIM PHARMACEUTICALS, INC.-2006-DE-06056GD

PATIENT
  Age: 6 Year
  Sex: Female

DRUGS (11)
  1. PREDNISONE TAB [Suspect]
     Indication: ASTHMA
     Route: 048
  2. PREDNISONE TAB [Suspect]
     Indication: OBLITERATIVE BRONCHIOLITIS
  3. HYDROCORTISONE [Suspect]
     Indication: ASTHMA
  4. IPRATROPIUM BROMIDE [Suspect]
     Indication: ASTHMA
  5. OXYGEN [Suspect]
     Indication: ASTHMA
  6. CEFUROXIME [Suspect]
     Indication: ASTHMA
  7. CLARITHROMYCIN [Suspect]
     Indication: ASTHMA
  8. CLARITHROMYCIN [Suspect]
     Indication: OBLITERATIVE BRONCHIOLITIS
  9. HYDROXYCHLOROQUINE SULFATE [Suspect]
     Indication: OBLITERATIVE BRONCHIOLITIS
     Route: 048
  10. SALBUTAMOL [Concomitant]
     Indication: OBLITERATIVE BRONCHIOLITIS
  11. FLUTICASONE PROPIONATE [Concomitant]
     Indication: OBLITERATIVE BRONCHIOLITIS

REACTIONS (5)
  - CUSHINGOID [None]
  - DRUG INEFFECTIVE [None]
  - PNEUMONIA [None]
  - PULMONARY HYPERTENSION [None]
  - THERAPY NON-RESPONDER [None]
